FAERS Safety Report 15452203 (Version 2)
Quarter: 2018Q4

REPORT INFORMATION
  Report Type: Spontaneous
  Country: GB (occurrence: GB)
  Receive Date: 20181001
  Receipt Date: 20181115
  Transmission Date: 20190204
  Serious: Yes (Other)
  Sender: FDA-Public Use
  Company Number: GB-TEVA-2018-GB-960154

PATIENT
  Age: 71 Year
  Sex: Female
  Weight: 68.94 kg

DRUGS (6)
  1. BISOPROLOL FUMARATE. [Suspect]
     Active Substance: BISOPROLOL FUMARATE
     Route: 065
     Dates: start: 20180625, end: 20180705
  2. BISOPROLOL FUMARATE. [Suspect]
     Active Substance: BISOPROLOL FUMARATE
     Indication: HEART RATE IRREGULAR
     Route: 048
     Dates: start: 20180903, end: 20180903
  3. RAMIPRIL. [Interacting]
     Active Substance: RAMIPRIL
     Route: 065
     Dates: start: 20180710, end: 20180912
  4. SIMVASTATIN. [Concomitant]
     Active Substance: SIMVASTATIN
     Route: 065
  5. ACETYLSALICYLIC ACID [Concomitant]
     Active Substance: ASPIRIN
     Route: 065
  6. RAMIPRIL. [Interacting]
     Active Substance: RAMIPRIL
     Route: 065
     Dates: start: 20180625, end: 20180705

REACTIONS (6)
  - Wheezing [Unknown]
  - Visual impairment [Recovering/Resolving]
  - Vision blurred [Recovered/Resolved]
  - Dizziness [Unknown]
  - Drug interaction [Unknown]
  - Lethargy [Unknown]

NARRATIVE: CASE EVENT DATE: 20180903
